FAERS Safety Report 6892483-2 (Version None)
Quarter: 2010Q3

REPORT INFORMATION
  Report Type: 
  Country: None (occurrence: None)
  Receive Date: 20100731
  Receipt Date: 20080812
  Transmission Date: 20110219
  Serious: Yes (Other)
  Sender: FDA-Public Use
  Company Number: US-PFIZER INC-2008050058

PATIENT
  Sex: Female
  Weight: 53.1 kg

DRUGS (6)
  1. GABAPENTIN [Suspect]
     Indication: PAIN
     Dates: start: 20070101
  2. GABAPENTIN [Suspect]
     Indication: INSOMNIA
  3. VICODIN [Concomitant]
  4. LISINOPRIL [Concomitant]
  5. LEXAPRO [Concomitant]
  6. LIPITOR [Concomitant]

REACTIONS (6)
  - CEREBROVASCULAR ACCIDENT [None]
  - DYSARTHRIA [None]
  - DYSGRAPHIA [None]
  - FEELING ABNORMAL [None]
  - THINKING ABNORMAL [None]
  - WEIGHT DECREASED [None]
